FAERS Safety Report 14271022 (Version 1)
Quarter: 2017Q4

REPORT INFORMATION
  Report Type: Spontaneous
  Country: IE (occurrence: IE)
  Receive Date: 20171211
  Receipt Date: 20171211
  Transmission Date: 20180321
  Serious: Yes (Hospitalization, Other)
  Sender: FDA-Public Use
  Company Number: IE-OTSUKA-DJ201501108

PATIENT

DRUGS (3)
  1. OPC-14597 [Concomitant]
     Active Substance: CILOSTAZOL
     Indication: SCHIZOAFFECTIVE DISORDER
     Route: 030
     Dates: start: 20150123
  2. ABILIFY [Suspect]
     Active Substance: ARIPIPRAZOLE
     Indication: SCHIZOAFFECTIVE DISORDER
     Route: 048
     Dates: start: 20150104, end: 20150206
  3. ABILIFY MAINTENA [Concomitant]
     Active Substance: ARIPIPRAZOLE
     Indication: SCHIZOAFFECTIVE DISORDER
     Dosage: 400 MG, QMO
     Route: 030
     Dates: start: 20150123

REACTIONS (3)
  - Suicidal behaviour [Recovered/Resolved]
  - Hand fracture [Recovered/Resolved]
  - Aggression [Recovered/Resolved]

NARRATIVE: CASE EVENT DATE: 20150116
